FAERS Safety Report 7526267-9 (Version None)
Quarter: 2011Q2

REPORT INFORMATION
  Report Type: 
  Country: None (occurrence: None)
  Receive Date: 20110606
  Receipt Date: 20110201
  Transmission Date: 20111010
  Serious: Yes (Other)
  Sender: FDA-Public Use
  Company Number: US-BAYER-201037981NA

PATIENT
  Age: 19 Year
  Sex: Female
  Weight: 63.492 kg

DRUGS (2)
  1. YAZ [Suspect]
     Indication: PRODUCT USED FOR UNKNOWN INDICATION
     Dosage: UNK
     Dates: start: 20071001
  2. AMOXICILLIN [Concomitant]

REACTIONS (5)
  - PAIN [None]
  - GALLBLADDER INJURY [None]
  - CHOLELITHIASIS [None]
  - DYSPEPSIA [None]
  - CHOLECYSTITIS CHRONIC [None]
